FAERS Safety Report 6153477-8 (Version None)
Quarter: 2009Q2

REPORT INFORMATION
  Report Type: 
  Country: None (occurrence: None)
  Receive Date: 20090413
  Receipt Date: 20080912
  Transmission Date: 20091009
  Serious: No
  Sender: FDA-Public Use
  Company Number: US-ABBOTT-08P-163-0457156-00

PATIENT
  Sex: Female
  Weight: 53.572 kg

DRUGS (1)
  1. LEUPROLIDE ACETATE INJECTION [Suspect]
     Indication: ENDOMETRIOSIS
     Route: 030
     Dates: start: 20080410, end: 20080410

REACTIONS (3)
  - OPTIC NERVE DISORDER [None]
  - VISION BLURRED [None]
  - VISUAL IMPAIRMENT [None]
